FAERS Safety Report 18481010 (Version 1)
Quarter: 2020Q4

REPORT INFORMATION
  Report Type: Spontaneous
  Country: US (occurrence: US)
  Receive Date: 20201109
  Receipt Date: 20201109
  Transmission Date: 20210114
  Serious: Yes (Other)
  Sender: FDA-Public Use
  Company Number: None

PATIENT
  Age: 96 Year
  Sex: Female
  Weight: 43.09 kg

DRUGS (10)
  1. IBRANCE [Suspect]
     Active Substance: PALBOCICLIB
     Indication: BREAST CANCER FEMALE
     Route: 048
     Dates: start: 20200717, end: 20201109
  2. CALTRATE [Concomitant]
     Active Substance: CALCIUM CARBONATE
  3. DEXAMETHASONE. [Concomitant]
     Active Substance: DEXAMETHASONE
  4. EVEROLIMUS. [Concomitant]
     Active Substance: EVEROLIMUS
  5. VERAPAMIL [Concomitant]
     Active Substance: VERAPAMIL HYDROCHLORIDE
  6. LETROZOLE. [Concomitant]
     Active Substance: LETROZOLE
  7. PRAVASTATIN. [Concomitant]
     Active Substance: PRAVASTATIN
  8. ATENOLOL. [Concomitant]
     Active Substance: ATENOLOL
  9. TIMOLOL. [Concomitant]
     Active Substance: TIMOLOL
  10. WARFARIN [Concomitant]
     Active Substance: WARFARIN

REACTIONS (1)
  - Disease progression [None]

NARRATIVE: CASE EVENT DATE: 20201109
